FAERS Safety Report 5060115-4 (Version None)
Quarter: 2006Q3

REPORT INFORMATION
  Report Type: 
  Country: None (occurrence: None)
  Receive Date: 20060719
  Receipt Date: 20060711
  Transmission Date: 20061208
  Serious: Yes (Death)
  Sender: FDA-Public Use
  Company Number: NLWYE728214JUN06

PATIENT
  Age: 65 Year
  Sex: Female

DRUGS (5)
  1. EFFEXOR [Suspect]
     Indication: DEPRESSION
     Dosage: 37.5 MG 1X PER 1 DAY
     Dates: start: 20060508
  2. REMERON [Concomitant]
  3. PERSANTIN - SLOW RELEASE (DIPYRIDAMOLE) [Concomitant]
  4. ASCAL (ACETYLSALICYLATE CALCIUM) [Concomitant]
  5. PERINDOPRIL ERBUMINE [Concomitant]

REACTIONS (10)
  - BLOOD PRESSURE INCREASED [None]
  - BRAIN COMPRESSION [None]
  - CONSCIOUSNESS FLUCTUATING [None]
  - DYSPHASIA [None]
  - EXTENSOR PLANTAR RESPONSE [None]
  - FACIAL PARESIS [None]
  - GENERAL PHYSICAL HEALTH DETERIORATION [None]
  - HAEMORRHAGIC STROKE [None]
  - HEMIPARESIS [None]
  - SOMNOLENCE [None]
